FAERS Safety Report 10248158 (Version 1)
Quarter: 2014Q2

REPORT INFORMATION
  Report Type: Spontaneous
  Country: US (occurrence: US)
  Receive Date: 20140619
  Receipt Date: 20140619
  Transmission Date: 20141212
  Serious: No
  Sender: FDA-Public Use
  Company Number: US-009507513-1406USA004102

PATIENT
  Age: 25 Year
  Sex: Female

DRUGS (1)
  1. NUVARING [Suspect]
     Indication: CONTRACEPTION
     Dosage: 4 WEEKS IN, NO BREAK, 1 RING
     Route: 067
     Dates: start: 201404

REACTIONS (2)
  - Device expulsion [Not Recovered/Not Resolved]
  - Incorrect drug administration duration [Unknown]
